FAERS Safety Report 9521550 (Version 1)
Quarter: 2013Q1

REPORT INFORMATION
  Report Type: Spontaneous
  Country: US (occurrence: None)
  Receive Date: 20130305
  Receipt Date: 20130305
  Transmission Date: 20140127
  Serious: Yes (Other)
  Sender: FDA-Public Use
  Company Number: 163-21880-12080026

PATIENT
  Age: 77 Year
  Sex: Female

DRUGS (12)
  1. REVLIMID (LENALIDOMIDE) (CAPSULES) [Suspect]
     Indication: MANTLE CELL LYMPHOMA
     Route: 048
     Dates: start: 20120626
  2. ACTOS (PIOGLITAZONE) [Concomitant]
  3. ALLOPURINOL (ALLOPURINOL) [Concomitant]
  4. ASA (ACETYLSALICYLIC ACID) [Concomitant]
  5. CALCIUM + D (OS-CAL) [Concomitant]
  6. CENTRUM SILVER (CENTRUM SILVER) [Concomitant]
  7. CO Q 10 (UBIDECARENONE) [Concomitant]
  8. GLIMEPIRIDE (GLIMEPIRIDE) [Concomitant]
  9. GLUCOSAMINE (CHONDROITIN (GLUCOSAMINE W/CHONDROITIN SULFATE) [Concomitant]
  10. HCTZ (HYDROCHLOROTHIAZIDE) [Concomitant]
  11. LISINOPRIL (LISINOPRIL) [Concomitant]
  12. TRAMADOL (TRAMADOL) [Concomitant]

REACTIONS (2)
  - Rash erythematous [None]
  - Blister [None]
